FAERS Safety Report 5186204-1 (Version None)
Quarter: 2006Q4

REPORT INFORMATION
  Report Type: 
  Country: None (occurrence: None)
  Receive Date: 20061220
  Receipt Date: 20061106
  Transmission Date: 20070319
  Serious: No
  Sender: FDA-Public Use
  Company Number: US-GLAXOSMITHKLINE-A0626277A

PATIENT
  Age: 54 Year
  Sex: Male

DRUGS (1)
  1. EQUATE NTS 21MG [Suspect]
     Dosage: 21MG PER DAY
     Route: 062
     Dates: start: 20061022, end: 20061102

REACTIONS (2)
  - APPLICATION SITE PRURITUS [None]
  - APPLICATION SITE RASH [None]
